FAERS Safety Report 9141800 (Version 2)
Quarter: 2013Q2

REPORT INFORMATION
  Report Type: Spontaneous
  Country: US (occurrence: US)
  Receive Date: 20130305
  Receipt Date: 20130506
  Transmission Date: 20140414
  Serious: No
  Sender: FDA-Public Use
  Company Number: US-AMGEN-USASP2013013966

PATIENT
  Age: 73 Year
  Sex: Female

DRUGS (2)
  1. ENBREL [Suspect]
     Indication: RHEUMATOID ARTHRITIS
     Dosage: 50 MG, QWK
     Dates: start: 20120201
  2. METHOTREXATE                       /00113802/ [Concomitant]
     Dosage: 15 MG, QWK
     Route: 048

REACTIONS (4)
  - Cystitis [Not Recovered/Not Resolved]
  - Discomfort [Not Recovered/Not Resolved]
  - Umbilical hernia [Recovered/Resolved]
  - Bronchitis [Recovered/Resolved]
